FAERS Safety Report 19571440 (Version 1)
Quarter: 2021Q3

REPORT INFORMATION
  Report Type: Spontaneous
  Country: US (occurrence: US)
  Receive Date: 20210715
  Receipt Date: 20210715
  Transmission Date: 20211014
  Serious: No
  Sender: FDA-Public Use
  Company Number: US-GILEAD-2021-0540648

PATIENT
  Age: 62 Year
  Sex: Female

DRUGS (3)
  1. LOMOTIL [LOPERAMIDE HYDROCHLORIDE] [Concomitant]
     Active Substance: LOPERAMIDE HYDROCHLORIDE
     Indication: DIARRHOEA
  2. TRODELVY [Suspect]
     Active Substance: SACITUZUMAB GOVITECAN-HZIY
     Indication: TRIPLE NEGATIVE BREAST CANCER
     Dosage: 19 MG/KG WEEKLY
     Route: 042
     Dates: start: 20210518
  3. MARINOL [MECOBALAMIN] [Concomitant]
     Indication: WEIGHT DECREASED

REACTIONS (1)
  - Intentional dose omission [Recovered/Resolved]
